FAERS Safety Report 14200241 (Version 1)
Quarter: 2017Q4

REPORT INFORMATION
  Report Type: Other
  Country: CA (occurrence: CA)
  Receive Date: 20171117
  Receipt Date: 20171117
  Transmission Date: 20180321
  Serious: Yes (Life-Threatening, Other)
  Sender: FDA-Public Use
  Company Number: CA-APOTEX-2017AP021214

PATIENT
  Age: 54 Year
  Sex: Female
  Weight: 108 kg

DRUGS (4)
  1. ZENHALE [Suspect]
     Active Substance: FORMOTEROL FUMARATE\MOMETASONE FUROATE
     Indication: SINUSITIS
     Dosage: 2 DF, UNK
     Route: 048
  2. AMOXICILLIN. [Concomitant]
     Active Substance: AMOXICILLIN
     Indication: PRODUCT USED FOR UNKNOWN INDICATION
     Route: 065
  3. APO-MOMETASONE [Suspect]
     Active Substance: MOMETASONE FUROATE
     Indication: SINUSITIS
     Route: 065
  4. ZENHALE [Suspect]
     Active Substance: FORMOTEROL FUMARATE\MOMETASONE FUROATE
     Indication: RESPIRATORY TRACT INFECTION

REACTIONS (7)
  - Rhinorrhoea [Recovered/Resolved]
  - Anxiety [Recovered/Resolved]
  - Obstructive airways disorder [Recovered/Resolved]
  - Pharyngeal oedema [Recovered/Resolved]
  - Anaphylactic reaction [Recovered/Resolved]
  - Hypertension [Recovered/Resolved]
  - Tachycardia [Recovered/Resolved]
